FAERS Safety Report 16141966 (Version 1)
Quarter: 2019Q2

REPORT INFORMATION
  Report Type: Spontaneous
  Country: US (occurrence: US)
  Receive Date: 20190401
  Receipt Date: 20190401
  Transmission Date: 20190711
  Serious: No
  Sender: FDA-Public Use
  Company Number: US-ARRAY-2019-05147

PATIENT

DRUGS (6)
  1. BRAFTOVI [Suspect]
     Active Substance: ENCORAFENIB
     Indication: COLON CANCER METASTATIC
     Dosage: UNK, QD
     Dates: start: 20190216
  2. DOXYCYCLINE. [Concomitant]
     Active Substance: DOXYCYCLINE
     Indication: RASH
     Dosage: 100 MG, BID
     Route: 048
     Dates: start: 20190216
  3. PANTOPRAZOLE [Concomitant]
     Active Substance: PANTOPRAZOLE
     Indication: PRODUCT USED FOR UNKNOWN INDICATION
  4. OXYCODONE [Concomitant]
     Active Substance: OXYCODONE
     Indication: PRODUCT USED FOR UNKNOWN INDICATION
  5. MEKTOVI [Suspect]
     Active Substance: BINIMETINIB
     Indication: COLON CANCER METASTATIC
     Dosage: UNK, BID
     Dates: start: 20190216
  6. VITAMIN D3 [Concomitant]
     Active Substance: CHOLECALCIFEROL
     Indication: VITAMIN SUPPLEMENTATION
     Dosage: UNK

REACTIONS (5)
  - Myalgia [Recovered/Resolved]
  - Product use in unapproved indication [Not Recovered/Not Resolved]
  - Vision blurred [Recovered/Resolved]
  - Vomiting [Recovered/Resolved]
  - Influenza [Recovered/Resolved]

NARRATIVE: CASE EVENT DATE: 20190216
